FAERS Safety Report 4709786-X (Version None)
Quarter: 2005Q3

REPORT INFORMATION
  Report Type: 
  Country: None (occurrence: None)
  Receive Date: 20050707
  Receipt Date: 20050616
  Transmission Date: 20060218
  Serious: Yes (Hospitalization, Other)
  Sender: FDA-Public Use
  Company Number: USA0506100347

PATIENT
  Age: 85 Year
  Sex: Male
  Weight: 80 kg

DRUGS (1)
  1. FORTEO [Suspect]
     Indication: OSTEOPOROSIS
     Dosage: 20 UG/1 DAY

REACTIONS (8)
  - ACCIDENT [None]
  - BACK PAIN [None]
  - CELLULITIS [None]
  - EXCORIATION [None]
  - RASH GENERALISED [None]
  - SKIN ULCER [None]
  - WOUND SECRETION [None]
  - WRONG TECHNIQUE IN DRUG USAGE PROCESS [None]
